FAERS Safety Report 20082218 (Version 1)
Quarter: 2021Q4

REPORT INFORMATION
  Report Type: Spontaneous
  Country: US (occurrence: US)
  Receive Date: 20211117
  Receipt Date: 20211117
  Transmission Date: 20220304
  Serious: Yes (Hospitalization, Other)
  Sender: FDA-Public Use
  Company Number: US-PFIZER INC-202101515410

PATIENT
  Age: 79 Year
  Sex: Male

DRUGS (1)
  1. CEFEPIME HYDROCHLORIDE [Suspect]
     Active Substance: CEFEPIME HYDROCHLORIDE
     Indication: Osteomyelitis
     Dosage: UNK, (EIGHT-WEEK COURSE TREATMENT)

REACTIONS (3)
  - Nephropathy toxic [Recovering/Resolving]
  - Tubulointerstitial nephritis [Recovering/Resolving]
  - Off label use [Unknown]
